FAERS Safety Report 10404323 (Version 1)
Quarter: 2014Q1

REPORT INFORMATION
  Report Type: Spontaneous
  Country: US (occurrence: None)
  Receive Date: 20131226
  Receipt Date: 20131226
  Transmission Date: 20141002
  Serious: Yes (Other)
  Sender: FDA-Public Use
  Company Number: PHEH2012US016300

PATIENT
  Age: 64 Year
  Sex: Male

DRUGS (8)
  1. VALTURNA [Suspect]
     Indication: HYPERTENSION
     Dosage: (300/320 MG)
     Route: 048
  2. CARDOVAR (TRIMAZOSIN HYDROCHLORIDE) [Concomitant]
  3. NORVASC (AMLODIPINE BESILATE) [Concomitant]
  4. COUMADINE (WARFARIN SODIUM) [Concomitant]
  5. CLONIDINE [Concomitant]
  6. CARDURA (DOXAZOSIN) [Concomitant]
  7. HYDRALAZINE [Concomitant]
  8. CORDOVAL (PENGITOXIN) [Concomitant]

REACTIONS (3)
  - Renal failure chronic [None]
  - Renal injury [None]
  - Anaemia [None]
